FAERS Safety Report 8757454 (Version 1)
Quarter: 2012Q4

REPORT INFORMATION
  Report Type: 
  Country: US (occurrence: US)
  Receive Date: 20120828
  Receipt Date: 20120828
  Transmission Date: 20130627
  Serious: Yes (Hospitalization)
  Sender: FDA-Public Use
  Company Number: US-US-EMD SERONO, INC.-234381J09USA

PATIENT
  Age: 46 None
  Sex: Female
  Weight: 44 kg

DRUGS (2)
  1. REBIF [Suspect]
     Indication: MULTIPLE SCLEROSIS
     Route: 058
     Dates: start: 20040613
  2. KEPPRA [Concomitant]
     Indication: SLEEP DISORDER

REACTIONS (5)
  - Convulsion [Recovered/Resolved]
  - Amnesia [Unknown]
  - Cognitive disorder [Unknown]
  - Blood urine present [Unknown]
  - Headache [Not Recovered/Not Resolved]
